FAERS Safety Report 6204772-5 (Version None)
Quarter: 2009Q2

REPORT INFORMATION
  Report Type: 
  Country: None (occurrence: None)
  Receive Date: 20090527
  Receipt Date: 20090515
  Transmission Date: 20091009
  Serious: Yes (Other)
  Sender: FDA-Public Use
  Company Number: US-PFIZER INC-2009214517

PATIENT
  Sex: Male

DRUGS (2)
  1. VIAGRA [Suspect]
  2. LOPRESSOR [Suspect]

REACTIONS (2)
  - HYPERTENSION [None]
  - VENTRICULAR TACHYCARDIA [None]
